FAERS Safety Report 9107751 (Version 1)
Quarter: 2013Q1

REPORT INFORMATION
  Report Type: Spontaneous
  Country: GB (occurrence: GB)
  Receive Date: 20130221
  Receipt Date: 20130221
  Transmission Date: 20140127
  Serious: Yes (Other)
  Sender: FDA-Public Use
  Company Number: GB-ROCHE-1192628

PATIENT
  Age: 76 Year
  Sex: Male

DRUGS (11)
  1. TOCILIZUMAB [Suspect]
     Indication: RHEUMATOID ARTHRITIS
     Route: 042
     Dates: start: 20120615
  2. BISOPROLOL [Concomitant]
  3. CANDESARTAN [Concomitant]
  4. CLOPIDOGREL [Concomitant]
  5. FOLIC ACID [Concomitant]
  6. HYDROXYCHLOROQUINE [Concomitant]
  7. METHOTREXATE [Concomitant]
  8. OMEPRAZOLE [Concomitant]
  9. PREDNISOLONE [Concomitant]
  10. SERETIDE [Concomitant]
  11. SIMVASTATIN [Concomitant]

REACTIONS (1)
  - Haemoptysis [Recovered/Resolved]
